FAERS Safety Report 6761382-9 (Version None)
Quarter: 2010Q2

REPORT INFORMATION
  Report Type: 
  Country: None (occurrence: None)
  Receive Date: 20100607
  Receipt Date: 20100524
  Transmission Date: 20101027
  Serious: Yes (Death)
  Sender: FDA-Public Use
  Company Number: 1-22755970

PATIENT
  Age: 38 Year
  Sex: Female

DRUGS (10)
  1. METRONIDAZOLE [Suspect]
     Indication: OSTEOMYELITIS
     Dosage: 1500 MG 1X/DAY, INTRAVENOUS
     Route: 042
  2. BACLOFEN [Suspect]
     Indication: PAIN
     Dosage: 25 MG 3 TIMES DAILY, UNKNOWN
  3. BACLOFEN [Suspect]
     Indication: PAIN
     Dosage: 25 MG 3 TIMES DAILY, UNKNOWN
  4. OMEPRAZOLE [Concomitant]
  5. FLOXACILLIN SODIUM [Concomitant]
  6. CIPROFLOXACIN [Concomitant]
  7. RIFAMPIN [Concomitant]
  8. VANCOMYCIN [Concomitant]
  9. TRIMETHOPRIM + SULFAMETHOXAZOLE [Concomitant]
  10. TEICOPLANIN [Concomitant]

REACTIONS (18)
  - BLOOD CREATININE DECREASED [None]
  - BLOOD POTASSIUM DECREASED [None]
  - BLOOD UREA DECREASED [None]
  - CEREBRAL VENTRICLE DILATATION [None]
  - COMA [None]
  - CONVULSION [None]
  - DEPENDENCE ON RESPIRATOR [None]
  - DYSARTHRIA [None]
  - ENCEPHALOPATHY [None]
  - GENERAL PHYSICAL HEALTH DETERIORATION [None]
  - HYPOVENTILATION [None]
  - NEUROTOXICITY [None]
  - OFF LABEL USE [None]
  - PUPILS UNEQUAL [None]
  - SOMNOLENCE [None]
  - SPEECH DISORDER [None]
  - STRESS [None]
  - VITAMIN B1 DEFICIENCY [None]
